FAERS Safety Report 14757238 (Version 1)
Quarter: 2018Q2

REPORT INFORMATION
  Report Type: Spontaneous
  Country: US (occurrence: US)
  Receive Date: 20180408
  Receipt Date: 20180408
  Transmission Date: 20180711
  Serious: Yes (Other)
  Sender: FDA-Public Use
  Company Number: None

PATIENT
  Age: 54 Year
  Sex: Female
  Weight: 79.65 kg

DRUGS (1)
  1. LEVOFLOXACIN 750 MG TABLET [Suspect]
     Active Substance: LEVOFLOXACIN
     Indication: SINUSITIS
     Dosage: ?          QUANTITY:5 DF DOSAGE FORM;?
     Route: 048
     Dates: start: 20180401, end: 20180402

REACTIONS (6)
  - Nausea [None]
  - Impaired work ability [None]
  - Crying [None]
  - Dizziness [None]
  - Dysstasia [None]
  - Hyperhidrosis [None]

NARRATIVE: CASE EVENT DATE: 20180403
